FAERS Safety Report 5735860-5 (Version None)
Quarter: 2008Q2

REPORT INFORMATION
  Report Type: 
  Country: None (occurrence: None)
  Receive Date: 20080513
  Receipt Date: 20080505
  Transmission Date: 20081010
  Serious: Yes (Hospitalization)
  Sender: FDA-Public Use
  Company Number: FR-ELI_LILLY_AND_COMPANY-FR200805001814

PATIENT
  Age: 83 Year
  Sex: Female

DRUGS (8)
  1. FORTEO [Suspect]
     Indication: OSTEOPOROSIS
     Dosage: 20 UG, DAILY (1/D)
     Dates: start: 20080225, end: 20080430
  2. COVERSYL /FRA/ [Concomitant]
     Dosage: 8 MG, UNK
  3. PLAVIX [Concomitant]
  4. AMLOR [Concomitant]
     Dosage: 5 MG, UNK
  5. DEBRIDAT [Concomitant]
  6. SKENAN [Concomitant]
     Dosage: 10 MG, UNK
  7. OMEPRAZOLE [Concomitant]
  8. DOLIPRANE [Concomitant]

REACTIONS (2)
  - FALL [None]
  - WRIST FRACTURE [None]
